FAERS Safety Report 12071721 (Version 1)
Quarter: 2016Q1

REPORT INFORMATION
  Report Type: Report from Study
  Country: CA (occurrence: CA)
  Receive Date: 20160212
  Receipt Date: 20160212
  Transmission Date: 20160526
  Serious: Yes (Other)
  Sender: FDA-Public Use
  Company Number: CA-AMGEN-CANSL2015105634

PATIENT
  Age: 93 Year
  Sex: Female

DRUGS (1)
  1. PROLIA [Suspect]
     Active Substance: DENOSUMAB
     Indication: OSTEOPOROSIS POSTMENOPAUSAL
     Dosage: 60 MG/ML, Q6MO
     Route: 058
     Dates: start: 20111021

REACTIONS (5)
  - Spinal compression fracture [Unknown]
  - Confusional state [Unknown]
  - Arthritis infective [Unknown]
  - Fall [Unknown]
  - Exostosis [Unknown]

NARRATIVE: CASE EVENT DATE: 2015
